FAERS Safety Report 19153458 (Version 1)
Quarter: 2021Q2

REPORT INFORMATION
  Report Type: Report from Study
  Country: None (occurrence: CA)
  Receive Date: 20210419
  Receipt Date: 20210419
  Transmission Date: 20210717
  Serious: Yes (Other)
  Sender: FDA-Public Use
  Company Number: CA-ABBVIE-21K-028-3859375-00

PATIENT
  Age: 56 Year
  Sex: Female

DRUGS (3)
  1. MODERNA COVID?19 VACCINE [Suspect]
     Active Substance: CX-024414
     Dosage: MODERNA
     Route: 030
     Dates: start: 202103, end: 202103
  2. MODERNA COVID?19 VACCINE [Suspect]
     Active Substance: CX-024414
     Indication: COVID-19 IMMUNISATION
     Dosage: MODERNA
     Route: 030
     Dates: start: 202102, end: 202102
  3. HUMIRA [Suspect]
     Active Substance: ADALIMUMAB
     Indication: CROHN^S DISEASE
     Route: 058
     Dates: start: 20190529

REACTIONS (25)
  - Tongue disorder [Unknown]
  - Uveitis [Unknown]
  - Cold sweat [Not Recovered/Not Resolved]
  - Anal fissure [Unknown]
  - Anal fissure haemorrhage [Unknown]
  - Feeling abnormal [Unknown]
  - Arthralgia [Unknown]
  - Oral pain [Unknown]
  - Oral lichen planus [Unknown]
  - Hot flush [Not Recovered/Not Resolved]
  - Rash [Not Recovered/Not Resolved]
  - Sinusitis [Not Recovered/Not Resolved]
  - Crohn^s disease [Not Recovered/Not Resolved]
  - Enterocolitis [Unknown]
  - Swollen tongue [Unknown]
  - Injection site bruising [Not Recovered/Not Resolved]
  - Impaired work ability [Unknown]
  - Typical aura without headache [Unknown]
  - Varicose vein [Unknown]
  - Mouth ulceration [Unknown]
  - Tongue discolouration [Unknown]
  - Impaired quality of life [Unknown]
  - Pain [Unknown]
  - General symptom [Unknown]
  - Therapeutic response shortened [Unknown]

NARRATIVE: CASE EVENT DATE: 2021
